FAERS Safety Report 8820548 (Version 1)
Quarter: 2012Q4

REPORT INFORMATION
  Report Type: 
  Country: US (occurrence: US)
  Receive Date: 20121002
  Receipt Date: 20121002
  Transmission Date: 20130627
  Serious: Yes (Other)
  Sender: FDA-Public Use
  Company Number: US-ROXANE LABORATORIES, INC.-2012-RO-01926RO

PATIENT
  Sex: Male

DRUGS (3)
  1. LITHIUM CARBONATE [Suspect]
     Dosage: 600 mg
     Route: 064
  2. LITHIUM CARBONATE [Suspect]
     Dosage: 900 mg
     Route: 064
  3. LITHIUM CARBONATE [Suspect]
     Route: 063

REACTIONS (3)
  - Medical observation abnormal [Recovered/Resolved]
  - Weight decreased [Recovered/Resolved]
  - Feeding disorder neonatal [Recovered/Resolved]
